FAERS Safety Report 25622356 (Version 1)
Quarter: 2025Q3

REPORT INFORMATION
  Report Type: Spontaneous
  Country: US (occurrence: US)
  Receive Date: 20250730
  Receipt Date: 20250730
  Transmission Date: 20251020
  Serious: Yes (Death, Other)
  Sender: ABBVIE
  Company Number: US-ABBVIE-6392384

PATIENT
  Sex: Female

DRUGS (1)
  1. RINVOQ [Suspect]
     Active Substance: UPADACITINIB
     Indication: Rheumatoid arthritis
     Route: 048
     Dates: start: 20250501, end: 20250619

REACTIONS (4)
  - Death [Fatal]
  - Pancytopenia [Unknown]
  - Pemphigoid [Unknown]
  - Rash [Unknown]

NARRATIVE: CASE EVENT DATE: 20250602
